FAERS Safety Report 10222816 (Version 3)
Quarter: 2014Q3

REPORT INFORMATION
  Report Type: Spontaneous
  Country: JP (occurrence: JP)
  Receive Date: 20140606
  Receipt Date: 20140820
  Transmission Date: 20150326
  Serious: Yes (Life-Threatening, Hospitalization)
  Sender: FDA-Public Use
  Company Number: JP-ASTRAZENECA-2014SE39285

PATIENT
  Age: 48 Year
  Sex: Female
  Weight: 50 kg

DRUGS (5)
  1. UNKNOWNDRUG [Concomitant]
     Active Substance: UNSPECIFIED INGREDIENT
     Route: 048
  2. TIENAM [Suspect]
     Active Substance: CILASTATIN SODIUM\IMIPENEM
     Indication: PERITONITIS
     Route: 041
     Dates: start: 20021122, end: 20021128
  3. GASTER [Suspect]
     Active Substance: FAMOTIDINE
     Indication: DUODENAL PERFORATION
     Route: 041
     Dates: start: 20021123, end: 20021209
  4. OMEPRAL [Suspect]
     Active Substance: OMEPRAZOLE
     Indication: DUODENAL PERFORATION
     Route: 041
     Dates: start: 20021116, end: 20021122
  5. CEFOPERAZIN [Suspect]
     Active Substance: CEFOPERAZONE SODIUM
     Indication: PERITONITIS
     Route: 041
     Dates: start: 20021116, end: 20021121

REACTIONS (12)
  - Liver disorder [Recovered/Resolved]
  - Acute respiratory distress syndrome [None]
  - Depressed level of consciousness [Recovered/Resolved]
  - Disseminated intravascular coagulation [Recovered/Resolved]
  - Gastroenteritis staphylococcal [Recovered/Resolved]
  - Drug ineffective [None]
  - Continuous haemodiafiltration [None]
  - Septic shock [Recovered/Resolved]
  - Staphylococcal pharyngitis [Recovered/Resolved]
  - Acute respiratory distress syndrome [Recovered/Resolved]
  - Ileus paralytic [Recovered/Resolved]
  - Renal failure acute [Recovered/Resolved]

NARRATIVE: CASE EVENT DATE: 20021122
